FAERS Safety Report 8084084-8 (Version None)
Quarter: 2012Q1

REPORT INFORMATION
  Report Type: 
  Country: None (occurrence: None)
  Receive Date: 20120128
  Receipt Date: 20110207
  Transmission Date: 20120608
  Serious: No
  Sender: FDA-Public Use
  Company Number: US-ABBOTT-11P-163-0703226-00

PATIENT
  Age: 60 Year
  Sex: Female

DRUGS (3)
  1. SYNTHROID [Concomitant]
     Indication: PRODUCT USED FOR UNKNOWN INDICATION
  2. HUMIRA [Suspect]
     Indication: RHEUMATOID ARTHRITIS
     Dates: start: 20100501
  3. NIFEDIPINE [Concomitant]
     Indication: PRODUCT USED FOR UNKNOWN INDICATION
     Dosage: ER

REACTIONS (4)
  - OROPHARYNGEAL PAIN [None]
  - NAUSEA [None]
  - DEVICE MALFUNCTION [None]
  - PYREXIA [None]
